FAERS Safety Report 20030344 (Version 3)
Quarter: 2021Q4

REPORT INFORMATION
  Report Type: Report from Study
  Country: US (occurrence: US)
  Receive Date: 20211103
  Receipt Date: 20211210
  Transmission Date: 20220303
  Serious: Yes (Hospitalization)
  Sender: FDA-Public Use
  Company Number: US-GLAXOSMITHKLINE-US2021GSK225160

PATIENT
  Age: 82 Year
  Sex: Male
  Weight: 40.4 kg

DRUGS (1)
  1. NIRAPARIB [Suspect]
     Active Substance: NIRAPARIB
     Indication: Pancreatic carcinoma metastatic
     Dosage: 100 MG, QD
     Route: 048
     Dates: start: 20201029

REACTIONS (1)
  - Biliary tract infection [Unknown]

NARRATIVE: CASE EVENT DATE: 20211022
